FAERS Safety Report 9691711 (Version 2)
Quarter: 2013Q4

REPORT INFORMATION
  Report Type: Spontaneous
  Country: CA (occurrence: CA)
  Receive Date: 20131115
  Receipt Date: 20131115
  Transmission Date: 20140711
  Serious: Yes (Other)
  Sender: FDA-Public Use
  Company Number: CA-ABBVIE-13P-028-1080775-00

PATIENT
  Age: 76 Year
  Sex: Male
  Weight: 89 kg

DRUGS (3)
  1. HUMIRA [Suspect]
     Indication: PRODUCT USED FOR UNKNOWN INDICATION
     Route: 058
  2. REMICADE [Suspect]
     Indication: ANKYLOSING SPONDYLITIS
     Route: 042
  3. REMICADE [Suspect]
     Indication: ARTHRITIS

REACTIONS (7)
  - Infusion related reaction [Unknown]
  - Fatigue [Recovered/Resolved]
  - Musculoskeletal stiffness [Unknown]
  - Cataract [Unknown]
  - Blood pressure increased [Recovered/Resolved]
  - Eye pain [Unknown]
  - Headache [Unknown]
